FAERS Safety Report 16365592 (Version 2)
Quarter: 2019Q2

REPORT INFORMATION
  Report Type: Spontaneous
  Country: IT (occurrence: IT)
  Receive Date: 20190529
  Receipt Date: 20190529
  Transmission Date: 20190711
  Serious: Yes (Death, Life-Threatening, Other)
  Sender: FDA-Public Use
  Company Number: IT-ACCORD-129779

PATIENT
  Age: 85 Year
  Sex: Male

DRUGS (1)
  1. DECITABINE. [Suspect]
     Active Substance: DECITABINE
     Indication: CHRONIC LYMPHOCYTIC LEUKAEMIA
     Dosage: DAYS 1-5
     Route: 042

REACTIONS (4)
  - Pneumonia bacterial [Unknown]
  - Cardiac failure [Fatal]
  - Haematotoxicity [Unknown]
  - Off label use [Unknown]
